FAERS Safety Report 6235043-9 (Version None)
Quarter: 2009Q2

REPORT INFORMATION
  Report Type: 
  Country: None (occurrence: None)
  Receive Date: 20090618
  Receipt Date: 20090616
  Transmission Date: 20091009
  Serious: Yes (Other)
  Sender: FDA-Public Use
  Company Number: NZ-ROCHE-637987

PATIENT
  Sex: Female

DRUGS (2)
  1. PEG-INTERFERON A-2A (RO 25-8310) [Suspect]
     Indication: DRUG USE FOR UNKNOWN INDICATION
     Dosage: DRUG NAME REPORTED AS:^PEGASYS RBV^(PEGINTERFERON+RIBAVIRIN)
     Route: 065
  2. RIBAVIRIN [Suspect]
     Indication: DRUG USE FOR UNKNOWN INDICATION
     Dosage: DRUG NAME REPORTED AS:^PEGASYS RBV^(PEGINTERFERON+RIBAVIRIN)
     Route: 065

REACTIONS (8)
  - CHEST PAIN [None]
  - COUGH [None]
  - DYSPNOEA [None]
  - FACIAL PAIN [None]
  - IMPAIRED HEALING [None]
  - JOINT CREPITATION [None]
  - MALAISE [None]
  - PANIC ATTACK [None]
